FAERS Safety Report 6059470-8 (Version None)
Quarter: 2009Q1

REPORT INFORMATION
  Report Type: 
  Country: None (occurrence: None)
  Receive Date: 20090127
  Receipt Date: 20090127
  Transmission Date: 20090719
  Serious: Yes (Hospitalization)
  Sender: FDA-Public Use
  Company Number: None

PATIENT
  Sex: Male
  Weight: 89.3586 kg

DRUGS (1)
  1. ERLOTONIB [Suspect]
     Indication: SQUAMOUS CELL CARCINOMA OF SKIN
     Dosage: 150 MG Q HS ORALLY
     Route: 048
     Dates: start: 20081021, end: 20081202

REACTIONS (3)
  - DEHYDRATION [None]
  - NAUSEA [None]
  - VOMITING [None]
